FAERS Safety Report 23198444 (Version 1)
Quarter: 2023Q4

REPORT INFORMATION
  Report Type: Spontaneous
  Country: CN (occurrence: CN)
  Receive Date: 20231117
  Receipt Date: 20231117
  Transmission Date: 20240109
  Serious: Yes (Life-Threatening)
  Sender: FDA-Public Use
  Company Number: CN-PFIZER INC-PV202300185734

PATIENT
  Age: 54 Year
  Sex: Female

DRUGS (3)
  1. PALBOCICLIB [Suspect]
     Active Substance: PALBOCICLIB
     Indication: Breast neoplasm
     Dosage: ONCE DAILY Q1-21
     Route: 048
     Dates: start: 20231009, end: 20231029
  2. DENOSUMAB [Suspect]
     Active Substance: DENOSUMAB
     Indication: Breast neoplasm
     Dosage: 120 MG, 1X/DAY
     Route: 041
     Dates: start: 20231009, end: 20231009
  3. LETROZOLE [Suspect]
     Active Substance: LETROZOLE
     Indication: Breast neoplasm
     Dosage: 2.5 MG, 1X/DAY
     Route: 048
     Dates: start: 20231008, end: 20231031

REACTIONS (1)
  - Myelosuppression [Unknown]

NARRATIVE: CASE EVENT DATE: 20231019
